FAERS Safety Report 9468931 (Version 1)
Quarter: 2013Q3

REPORT INFORMATION
  Report Type: Spontaneous
  Country: GB (occurrence: None)
  Receive Date: 20130815
  Receipt Date: 20130815
  Transmission Date: 20140515
  Serious: Yes (Disabling, Other)
  Sender: FDA-Public Use
  Company Number: AUR-APL-2013-06574

PATIENT
  Age: 67 Year
  Sex: Male
  Weight: 65 kg

DRUGS (9)
  1. SIMVASTATIN (SIMVASTATIN) [Suspect]
     Indication: PRODUCT USED FOR UNKNOWN INDICATION
  2. ADCAL (CARBAZOCHROME) [Concomitant]
  3. AMITRIPTYLINE HYDROCHLORIDE (AMITRIPTYLINE HYDROCHLORIDE) [Concomitant]
  4. AMLODIPINE (AMLODIPINE) [Concomitant]
  5. CIALIS (TADALAFIL) [Concomitant]
  6. IBUPROFEN (IBUPROFEN) [Concomitant]
  7. LATANOPROST (LATANOPROST) (NONE) [Concomitant]
  8. PARACETAMOL (PARACETAMOL) [Concomitant]
  9. TRANSVASIN (TRANSVASIN) [Concomitant]

REACTIONS (1)
  - Rhabdomyolysis [None]
